FAERS Safety Report 5203540-0 (Version None)
Quarter: 2007Q1

REPORT INFORMATION
  Report Type: 
  Country: None (occurrence: None)
  Receive Date: 20070110
  Receipt Date: 20070102
  Transmission Date: 20070707
  Serious: Yes (Hospitalization)
  Sender: FDA-Public Use
  Company Number: PHBS2007RO00534

PATIENT
  Age: 18 Year
  Sex: Female

DRUGS (1)
  1. BACLOFEN [Suspect]
     Indication: TOOTHACHE
     Dosage: 12 TABLETS
     Route: 048

REACTIONS (13)
  - COMA [None]
  - HYPERGLYCAEMIA [None]
  - HYPERTENSION [None]
  - HYPOREFLEXIA [None]
  - HYPOTONIA [None]
  - INTENTIONAL OVERDOSE [None]
  - INTUBATION [None]
  - LEUKOCYTOSIS [None]
  - LOSS OF CONSCIOUSNESS [None]
  - MIOSIS [None]
  - RESPIRATORY ARREST [None]
  - SUPRAVENTRICULAR TACHYCARDIA [None]
  - TACHYCARDIA [None]
